FAERS Safety Report 9162762 (Version 4)
Quarter: 2016Q2

REPORT INFORMATION
  Report Type: Report from Study
  Country: US (occurrence: US)
  Receive Date: 20130314
  Receipt Date: 20160426
  Transmission Date: 20160815
  Serious: Yes (Other)
  Sender: FDA-Public Use
  Company Number: US-AMGEN-USASP2013016541

PATIENT
  Age: 57 Year
  Sex: Female

DRUGS (7)
  1. CORTISONE [Concomitant]
     Active Substance: CORTISONE\HYDROCORTISONE
     Indication: PSORIASIS
  2. ENBREL [Suspect]
     Active Substance: ETANERCEPT
     Indication: PSORIATIC ARTHROPATHY
     Dosage: 50 MG, QWK
     Route: 065
     Dates: start: 1998, end: 20110601
  3. OTEZLA [Suspect]
     Active Substance: APREMILAST
     Indication: PRODUCT USED FOR UNKNOWN INDICATION
     Dosage: UNK
     Route: 048
     Dates: start: 2015
  4. ENBREL [Suspect]
     Active Substance: ETANERCEPT
     Dosage: UNK
     Route: 065
     Dates: end: 201502
  5. ENBREL [Suspect]
     Active Substance: ETANERCEPT
     Dosage: UNK
     Route: 065
  6. CORTISONE [Concomitant]
     Active Substance: CORTISONE\HYDROCORTISONE
     Indication: OSTEOARTHRITIS
  7. CORTISONE [Concomitant]
     Active Substance: CORTISONE\HYDROCORTISONE
     Indication: FIBROMYALGIA

REACTIONS (13)
  - Latent tuberculosis [Unknown]
  - Tuberculin test positive [Unknown]
  - Back pain [Not Recovered/Not Resolved]
  - Hypersensitivity [Unknown]
  - Nausea [Unknown]
  - Visual acuity reduced [Unknown]
  - Skin plaque [Unknown]
  - Cluster headache [Unknown]
  - Raynaud^s phenomenon [Unknown]
  - Corrective lens user [Unknown]
  - Arthralgia [Not Recovered/Not Resolved]
  - Vomiting [Unknown]
  - Lacrimation increased [Unknown]

NARRATIVE: CASE EVENT DATE: 2011
